FAERS Safety Report 18665220 (Version 1)
Quarter: 2020Q4

REPORT INFORMATION
  Report Type: Spontaneous
  Country: FR (occurrence: FR)
  Receive Date: 20201225
  Receipt Date: 20201225
  Transmission Date: 20210114
  Serious: Yes (Hospitalization)
  Sender: FDA-Public Use
  Company Number: NVSC2020FR337174

PATIENT
  Age: 82 Year
  Sex: Male
  Weight: 70 kg

DRUGS (2)
  1. RIFAMPICIN [Suspect]
     Active Substance: RIFAMPIN
     Indication: ENDOCARDITIS
     Dosage: 15 MG/KG, QD
     Route: 048
     Dates: start: 20201117, end: 20201123
  2. DAPTOMYCIN. [Suspect]
     Active Substance: DAPTOMYCIN
     Indication: ENDOCARDITIS
     Dosage: 10 MG/KG, QD
     Route: 042
     Dates: start: 20201117, end: 20201123

REACTIONS (4)
  - Renal failure [Not Recovered/Not Resolved]
  - Eosinophilia [Recovering/Resolving]
  - Oral mucosa erosion [Recovered/Resolved]
  - Jaundice cholestatic [Recovering/Resolving]

NARRATIVE: CASE EVENT DATE: 20201118
